FAERS Safety Report 5003048-1 (Version None)
Quarter: 2006Q2

REPORT INFORMATION
  Report Type: 
  Country: None (occurrence: None)
  Receive Date: 20060516
  Receipt Date: 20060505
  Transmission Date: 20061013
  Serious: Yes (Other)
  Sender: FDA-Public Use
  Company Number: BR-ROCHE-447215

PATIENT
  Age: 52 Year
  Sex: Female
  Weight: 85 kg

DRUGS (2)
  1. XENICAL [Suspect]
     Indication: OBESITY
     Route: 048
     Dates: start: 20060315
  2. REDUCTIL [Concomitant]
     Route: 048

REACTIONS (3)
  - ALANINE AMINOTRANSFERASE INCREASED [None]
  - DIARRHOEA [None]
  - GAMMA-GLUTAMYLTRANSFERASE INCREASED [None]
